FAERS Safety Report 9405580 (Version 2)
Quarter: 2013Q3

REPORT INFORMATION
  Report Type: Spontaneous
  Country: DE (occurrence: None)
  Receive Date: 20130715
  Receipt Date: 20130723
  Transmission Date: 20140515
  Serious: Yes (Other)
  Sender: FDA-Public Use
  Company Number: 7222942

PATIENT
  Age: 62 Year
  Sex: Female

DRUGS (2)
  1. EUTHYROX [Suspect]
     Indication: THYROID HORMONE REPLACEMENT THERAPY
     Route: 048
     Dates: start: 1995, end: 20130704
  2. STANGYL /00051802/ (TRIMIPRAMINE MALEATE) (TRIMIPRAMINE MALEATE) [Suspect]
     Indication: DEPRESSION
     Dates: end: 2012

REACTIONS (5)
  - Hyperthyroidism [None]
  - Thyroglobulin increased [None]
  - Sleep disorder [None]
  - Agitation [None]
  - Depression [None]
